APPROVED DRUG PRODUCT: INDOMETHACIN
Active Ingredient: INDOMETHACIN
Strength: EQ 1MG BASE/VIAL
Dosage Form/Route: INJECTABLE;INJECTION
Application: N022536 | Product #001
Applicant: FRESENIUS KABI USA LLC
Approved: Mar 17, 2010 | RLD: Yes | RS: Yes | Type: RX